FAERS Safety Report 7462238-9 (Version None)
Quarter: 2011Q2

REPORT INFORMATION
  Report Type: 
  Country: None (occurrence: None)
  Receive Date: 20110506
  Receipt Date: 20110502
  Transmission Date: 20111010
  Serious: Yes (Hospitalization)
  Sender: FDA-Public Use
  Company Number: US-ALEXION-A200800343

PATIENT
  Sex: Male

DRUGS (5)
  1. FOLIC ACID [Concomitant]
  2. SOLIRIS [Suspect]
     Dosage: 900 MG, Q2W
     Route: 042
  3. SOLIRIS [Suspect]
     Indication: PAROXYSMAL NOCTURNAL HAEMOGLOBINURIA
     Route: 042
     Dates: start: 20070101
  4. IRON [Concomitant]
  5. VICODIN [Concomitant]
     Dosage: UNK, PRN
     Route: 048

REACTIONS (5)
  - PAIN [None]
  - ANAEMIA [None]
  - MOUTH ULCERATION [None]
  - OROPHARYNGEAL PAIN [None]
  - MENINGOCOCCAL SEPSIS [None]
